FAERS Safety Report 17625772 (Version 5)
Quarter: 2020Q3

REPORT INFORMATION
  Report Type: Spontaneous
  Country: JP (occurrence: JP)
  Receive Date: 20200404
  Receipt Date: 20200917
  Transmission Date: 20201102
  Serious: Yes (Hospitalization, Other)
  Sender: FDA-Public Use
  Company Number: JP-AMGEN-JPNSP2020055894

PATIENT
  Age: 43 Year
  Sex: Female
  Weight: 42.8 kg

DRUGS (26)
  1. ROCALTROL [Concomitant]
     Active Substance: CALCITRIOL
     Dosage: 1.5 UG, Q56H
     Route: 042
     Dates: start: 20181217, end: 20181221
  2. ROCALTROL [Concomitant]
     Active Substance: CALCITRIOL
     Dosage: 1.5 UG, Q56H
     Route: 042
     Dates: start: 20190107, end: 20190202
  3. ROCALTROL [Concomitant]
     Active Substance: CALCITRIOL
     Dosage: 1 UG, Q2W
     Route: 042
     Dates: start: 20190206, end: 20190821
  4. PARSABIV [Suspect]
     Active Substance: ETELCALCETIDE HYDROCHLORIDE
     Indication: HYPERPARATHYROIDISM SECONDARY
     Dosage: 2.5 MILLIGRAM, QWK
     Route: 010
     Dates: start: 20190816
  5. ROCALTROL [Concomitant]
     Active Substance: CALCITRIOL
     Dosage: 1.5 UG, Q56H
     Route: 042
     Dates: start: 20180207, end: 20180907
  6. RIONA [Concomitant]
     Active Substance: FERRIC CITRATE ANHYDROUS
     Dosage: 2500 MG, EVERYDAY
     Route: 065
  7. PRECIPITATED CALCIUM CARBONATE [Concomitant]
     Active Substance: CALCIUM CARBONATE
     Dosage: 1250 MG, EVERYDAY
     Route: 065
     Dates: end: 20181009
  8. PHOSBLOCK [Concomitant]
     Active Substance: FERRIC HYDROXIDE
     Dosage: 1000 MG, EVERYDAY
     Route: 065
     Dates: start: 20180509, end: 20180814
  9. ROCALTROL [Concomitant]
     Active Substance: CALCITRIOL
     Dosage: 1.25 UG, QW
     Route: 042
     Dates: start: 20180917, end: 20191008
  10. ROCALTROL [Concomitant]
     Active Substance: CALCITRIOL
     Dosage: 1 UG, Q2W
     Route: 042
     Dates: start: 20190904
  11. ROCALTROL [Concomitant]
     Active Substance: CALCITRIOL
     Dosage: 0.5 UG, Q4W
     Route: 042
     Dates: start: 20190828
  12. ROCALTROL [Concomitant]
     Active Substance: CALCITRIOL
     Dosage: 1.5 UG, Q2W
     Route: 042
     Dates: start: 20190213, end: 20190814
  13. PRECIPITATED CALCIUM CARBONATE [Concomitant]
     Active Substance: CALCIUM CARBONATE
     Dosage: 500 MG, EVERYDAY
     Route: 065
     Dates: start: 20181130
  14. PHOSBLOCK [Concomitant]
     Active Substance: FERRIC HYDROXIDE
     Dosage: 3500 MG, EVERYDAY
     Route: 065
     Dates: start: 20181130
  15. ROCALTROL [Concomitant]
     Active Substance: CALCITRIOL
     Dosage: 1.5 UG, Q84H
     Route: 042
     Dates: start: 20181012, end: 20181214
  16. ROCALTROL [Concomitant]
     Active Substance: CALCITRIOL
     Dosage: 1 UG, QW
     Route: 042
     Dates: start: 20181226, end: 20190102
  17. PHOSBLOCK [Concomitant]
     Active Substance: FERRIC HYDROXIDE
     Dosage: 1250 MG, EVERYDAY
     Route: 065
     Dates: start: 20180815, end: 20181009
  18. FOSRENOL [Concomitant]
     Active Substance: LANTHANUM CARBONATE
     Dosage: 1000 MG, EVERYDAY
     Route: 048
     Dates: start: 20190313
  19. MIRCERA [Concomitant]
     Active Substance: METHOXY POLYETHYLENE GLYCOL-EPOETIN BETA
     Dosage: 25 UG
     Route: 065
     Dates: start: 20180914
  20. ROCALTROL [Concomitant]
     Active Substance: CALCITRIOL
     Dosage: 1.5 UG, Q84H
     Route: 042
     Dates: start: 20190204, end: 20190823
  21. PHOSBLOCK [Concomitant]
     Active Substance: FERRIC HYDROXIDE
     Dosage: 2500 MG, EVERYDAY
     Route: 065
     Dates: start: 20181010, end: 20181129
  22. ROCALTROL [Concomitant]
     Active Substance: CALCITRIOL
     Dosage: 1 UG, QW
     Route: 042
     Dates: start: 20181015, end: 20181210
  23. ROCALTROL [Concomitant]
     Active Substance: CALCITRIOL
     Dosage: 1.5 UG, Q84H
     Route: 042
     Dates: start: 20190826
  24. ROCALTROL [Concomitant]
     Active Substance: CALCITRIOL
     Dosage: 1.5 UG, Q84H
     Route: 042
     Dates: start: 20180914, end: 20181010
  25. ROCALTROL [Concomitant]
     Active Substance: CALCITRIOL
     Dosage: 1.5 UG, Q84H
     Route: 042
     Dates: start: 20181224, end: 20190104
  26. PRECIPITATED CALCIUM CARBONATE [Concomitant]
     Active Substance: CALCIUM CARBONATE
     Dosage: 1000 MG, EVERYDAY
     Route: 065
     Dates: start: 20181010, end: 20181129

REACTIONS (2)
  - Shunt occlusion [Recovered/Resolved]
  - Shunt occlusion [Recovered/Resolved]

NARRATIVE: CASE EVENT DATE: 20191123
